FAERS Safety Report 25529318 (Version 1)
Quarter: 2025Q3

REPORT INFORMATION
  Report Type: Spontaneous
  Country: EU (occurrence: EU)
  Receive Date: 20250708
  Receipt Date: 20250708
  Transmission Date: 20251020
  Serious: Yes (Other)
  Sender: TORRENT PHARMA INC.
  Company Number: None

PATIENT
  Age: 30 Year
  Sex: Female
  Weight: 68 kg

DRUGS (2)
  1. SERTRALINE HYDROCHLORIDE [Suspect]
     Active Substance: SERTRALINE HYDROCHLORIDE
     Indication: Premenstrual dysphoric disorder
     Dosage: 50MG, 1-0-0-0, P.O.
     Route: 048
     Dates: start: 20250516, end: 20250527
  2. METHYLPHENIDATE [Concomitant]
     Active Substance: METHYLPHENIDATE
     Indication: Attention deficit hyperactivity disorder
     Dosage: 20 MG, 1-0-0-0, P.O
     Route: 048
     Dates: start: 202502

REACTIONS (15)
  - Rash [Unknown]
  - Swelling face [Recovered/Resolved]
  - Lip swelling [Unknown]
  - Swollen tongue [Unknown]
  - Dysphagia [Unknown]
  - Hypersensitivity [Recovered/Resolved]
  - Fatigue [Recovered/Resolved]
  - Somnolence [Unknown]
  - Headache [Unknown]
  - Mental impairment [Unknown]
  - Increased need for sleep [Unknown]
  - Pruritus [Unknown]
  - Sick leave [Unknown]
  - Rash pruritic [Recovered/Resolved]
  - Asthenia [Recovered/Resolved]

NARRATIVE: CASE EVENT DATE: 20250501
